FAERS Safety Report 20057000 (Version 2)
Quarter: 2023Q2

REPORT INFORMATION
  Report Type: Spontaneous
  Country: US (occurrence: US)
  Receive Date: 20211111
  Receipt Date: 20230630
  Transmission Date: 20230721
  Serious: Yes (Other)
  Sender: FDA-Public Use
  Company Number: US-GLENMARK PHARMACEUTICALS-2021GMK068772

PATIENT

DRUGS (3)
  1. SIROLIMUS [Suspect]
     Active Substance: SIROLIMUS
     Indication: Immunosuppression
     Dosage: 2 MILLIGRAM, QD
     Route: 048
  2. MYCOPHENOLIC ACID [Concomitant]
     Active Substance: MYCOPHENOLIC ACID
     Indication: Immunosuppression
     Dosage: 2000 MILLIGRAM, QD
     Route: 065
  3. DAPSONE [Concomitant]
     Active Substance: DAPSONE
     Indication: Immunosuppression
     Dosage: 100 MILLIGRAM, QD
     Route: 065

REACTIONS (3)
  - Optic neuropathy [Recovering/Resolving]
  - Toxicity to various agents [Unknown]
  - Product use issue [Unknown]
